FAERS Safety Report 10362011 (Version 1)
Quarter: 2014Q1

REPORT INFORMATION
  Report Type: Spontaneous
  Country: US (occurrence: None)
  Receive Date: 20140306
  Receipt Date: 20140306
  Transmission Date: 20141002
  Serious: Yes (Other)
  Sender: FDA-Public Use
  Company Number: 163-21880-13052726

PATIENT
  Age: 54 Year
  Sex: Male
  Weight: 76.66 kg

DRUGS (10)
  1. REVLIMID (LENALIDOMIDE) (10 MILLIGRAM, CAPSULES) [Suspect]
     Indication: MANTLE CELL LYMPHOMA
     Dosage: 10 MG, 21 IN 28 D, PO
     Route: 048
     Dates: start: 201304
  2. METHADONE (METHADONE) (UNKNOWN) (METHADONE) [Concomitant]
  3. PROTONIX (UNKNOWN) [Concomitant]
  4. RIFAXIMIN (RIFAXIMIN) (UNKNOWN) [Concomitant]
  5. SPIRONOLACTONE (SPIRONOLACTONE) (UNKNOWN) [Concomitant]
  6. ALBUTEROL (SALBUTAMOL) (INHALANT) [Concomitant]
  7. LEVOTHYROXINE (LEVOTHYROXINE) (UNKNOWN) [Concomitant]
  8. FUROSEMIDE (FUROSEMIDE) (UNKNOWN) [Concomitant]
  9. MORPHINE (MORPHINE) (UNKNOWN) (MORPHINE) [Concomitant]
  10. RITUXAN (RITUXIMAB) (UNKNOWN) [Concomitant]

REACTIONS (4)
  - White blood cell count decreased [None]
  - Thrombocytopenia [None]
  - Neutrophil count decreased [None]
  - Nausea [None]
